FAERS Safety Report 6216173-4 (Version None)
Quarter: 2009Q2

REPORT INFORMATION
  Report Type: 
  Country: None (occurrence: None)
  Receive Date: 20090603
  Receipt Date: 20090603
  Transmission Date: 20091009
  Serious: No
  Sender: FDA-Public Use
  Company Number: None

PATIENT
  Age: 36 Year
  Sex: Male
  Weight: 90.9 kg

DRUGS (1)
  1. TRAMADOL HCL [Suspect]
     Dosage: 25 MG OTHER PO
     Route: 048
     Dates: start: 20081006, end: 20081006

REACTIONS (5)
  - DYSPNOEA [None]
  - PRURITUS [None]
  - RASH [None]
  - SWELLING [None]
  - URTICARIA [None]
